FAERS Safety Report 4418622-0 (Version None)
Quarter: 2004Q3

REPORT INFORMATION
  Report Type: 
  Country: None (occurrence: None)
  Receive Date: 20040809
  Receipt Date: 20031216
  Transmission Date: 20050211
  Serious: No
  Sender: FDA-Public Use
  Company Number: US-GLAXOSMITHKLINE-A0443339A

PATIENT
  Age: 71 Year
  Sex: Female

DRUGS (8)
  1. PAXIL [Suspect]
     Dosage: 20MG PER DAY
     Route: 048
     Dates: start: 20031101, end: 20031101
  2. FLOVENT [Concomitant]
  3. FLONASE [Concomitant]
  4. VERAPAMIL [Concomitant]
  5. CALAN [Concomitant]
  6. DEMADEX [Concomitant]
  7. AMARYL [Concomitant]
  8. HUMULIN [Concomitant]

REACTIONS (1)
  - PALPITATIONS [None]
